FAERS Safety Report 19977362 (Version 2)
Quarter: 2022Q1

REPORT INFORMATION
  Report Type: Other
  Country: US (occurrence: None)
  Receive Date: 20211021
  Receipt Date: 20220208
  Transmission Date: 20220423
  Serious: Yes (Death)
  Sender: FDA-Public Use
  Company Number: US-ROCHE-2938582

PATIENT
  Age: 73 Year
  Sex: Male

DRUGS (9)
  1. RITUXAN [Suspect]
     Active Substance: RITUXIMAB
     Indication: Non-Hodgkin^s lymphoma
     Dosage: DOT- 11/AUG/2021, 18/AUG/2021
     Route: 065
  2. RITUXAN [Suspect]
     Active Substance: RITUXIMAB
     Dosage: DOT-25/AUG/2021, 01/SEP/2021
     Route: 065
  3. TYLENOL [Concomitant]
     Active Substance: ACETAMINOPHEN
  4. ELIQUIS [Concomitant]
     Active Substance: APIXABAN
     Route: 048
  5. DUREZOL [Concomitant]
     Active Substance: DIFLUPREDNATE
  6. GLUCOPHAGE XR [Concomitant]
     Active Substance: METFORMIN HYDROCHLORIDE
  7. ACTOS [Concomitant]
     Active Substance: PIOGLITAZONE HYDROCHLORIDE
  8. VALCYTE [Concomitant]
     Active Substance: VALGANCICLOVIR HYDROCHLORIDE
  9. VITAMIN B12 [Concomitant]
     Active Substance: CYANOCOBALAMIN
     Route: 048

REACTIONS (1)
  - Death [Fatal]

NARRATIVE: CASE EVENT DATE: 20210906
